FAERS Safety Report 23402160 (Version 2)
Quarter: 2024Q1

REPORT INFORMATION
  Report Type: Report from Study
  Country: CA (occurrence: CA)
  Receive Date: 20240115
  Receipt Date: 20240320
  Transmission Date: 20240410
  Serious: Yes (Other)
  Sender: FDA-Public Use
  Company Number: CA-OTSUKA-2024_000790

PATIENT
  Age: 35 Year
  Sex: Male

DRUGS (1)
  1. TOLVAPTAN [Suspect]
     Active Substance: TOLVAPTAN
     Indication: Congenital cystic kidney disease
     Dosage: 60 MG, QD
     Route: 048
     Dates: start: 20231206, end: 20240108

REACTIONS (3)
  - Bronchitis [Unknown]
  - Polydipsia [Unknown]
  - Thirst [Unknown]

NARRATIVE: CASE EVENT DATE: 20240108
